FAERS Safety Report 20501131 (Version 2)
Quarter: 2022Q1

REPORT INFORMATION
  Report Type: Spontaneous
  Country: IT (occurrence: IT)
  Receive Date: 20220222
  Receipt Date: 20220315
  Transmission Date: 20220423
  Serious: Yes (Other)
  Sender: FDA-Public Use
  Company Number: IT-ECUPHARMA-202200005

PATIENT
  Age: 13 Year
  Sex: Female

DRUGS (12)
  1. ARIPIPRAZOLE [Suspect]
     Active Substance: ARIPIPRAZOLE
     Indication: Psychotic symptom
     Dosage: 15 MILLIGRAM, QD, 15 MG DAILY
  2. ARIPIPRAZOLE [Suspect]
     Active Substance: ARIPIPRAZOLE
     Indication: Obsessive-compulsive disorder
     Dosage: 10 MILLIGRAM, QD,10 MG, PER DAY
     Route: 065
  3. ARIPIPRAZOLE [Suspect]
     Active Substance: ARIPIPRAZOLE
     Indication: Anxiety disorder
     Dosage: 10 MILLIGRAM, QD,10 MG, PER DAY.(10 MILLIGRAM, QD, DOSE REDUCTION)
  4. ARIPIPRAZOLE [Suspect]
     Active Substance: ARIPIPRAZOLE
     Dosage: 15 MILLIGRAM, QD, 15 MG DAILY
     Route: 065
  5. LAMOTRIGINE [Suspect]
     Active Substance: LAMOTRIGINE
     Indication: Psychotic symptom
     Dosage: UNK
  6. RISPERIDONE [Suspect]
     Active Substance: RISPERIDONE
     Indication: Psychotic symptom
     Dosage: UNK
  7. VALPROIC ACID [Concomitant]
     Active Substance: VALPROIC ACID
     Indication: Psychotic symptom
     Dosage: 25 MILLIGRAM/KILOGRAM, QD, (25 MG/KG DAILY)
     Route: 065
  8. VALPROIC ACID [Concomitant]
     Active Substance: VALPROIC ACID
     Indication: Obsessive-compulsive disorder
     Dosage: UNK
  9. VALPROIC ACID [Concomitant]
     Active Substance: VALPROIC ACID
     Indication: Anxiety disorder
     Dosage: UNK
  10. FLUOXETINE [Concomitant]
     Active Substance: FLUOXETINE HYDROCHLORIDE
     Indication: Psychotic symptom
     Dosage: 20 MILLIGRAM, QD, 20 MG DAILY
  11. FLUOXETINE [Concomitant]
     Active Substance: FLUOXETINE HYDROCHLORIDE
     Indication: Obsessive-compulsive disorder
     Dosage: UNK
  12. FLUOXETINE [Concomitant]
     Active Substance: FLUOXETINE HYDROCHLORIDE
     Indication: Anxiety disorder
     Dosage: UNK

REACTIONS (11)
  - Oculogyric crisis [Recovered/Resolved]
  - Drug effective for unapproved indication [Unknown]
  - Obsessive thoughts [Recovered/Resolved]
  - Pain [Recovered/Resolved]
  - Panic attack [Recovered/Resolved]
  - Flushing [Recovered/Resolved]
  - Anxiety [Recovered/Resolved]
  - Hyperhidrosis [Recovered/Resolved]
  - Headache [Recovered/Resolved]
  - Weight increased [Unknown]
  - Off label use [Unknown]
